FAERS Safety Report 8170479-0 (Version None)
Quarter: 2012Q1

REPORT INFORMATION
  Report Type: 
  Country: None (occurrence: None)
  Receive Date: 20120228
  Receipt Date: 20120214
  Transmission Date: 20120608
  Serious: Yes (Hospitalization)
  Sender: FDA-Public Use
  Company Number: IN-CELGENEUS-078-21880-11120869

PATIENT
  Age: 38 Year
  Sex: Male

DRUGS (7)
  1. REVLIMID [Suspect]
     Dosage: 10 MILLIGRAM
     Route: 048
     Dates: start: 20100704, end: 20100718
  2. WARFARIN SODIUM [Concomitant]
     Dosage: 1 MILLIGRAM
     Route: 065
  3. REVLIMID [Suspect]
     Dosage: 10 MILLIGRAM
     Route: 048
     Dates: start: 20100531, end: 20100610
  4. ZOLEDRONIC [Concomitant]
     Route: 041
  5. PREDNISOLONE [Concomitant]
     Dosage: 100 MILLIGRAM
     Route: 065
  6. MELPHALAN [Concomitant]
     Dosage: 10 MILLIGRAM
     Route: 065
  7. ASPIRIN [Concomitant]
     Dosage: 100 MILLIGRAM
     Route: 065

REACTIONS (1)
  - CHOLESTASIS [None]
